FAERS Safety Report 9610031 (Version 1)
Quarter: 2013Q4

REPORT INFORMATION
  Report Type: Spontaneous
  Country: FR (occurrence: FR)
  Receive Date: 20131009
  Receipt Date: 20131009
  Transmission Date: 20140711
  Serious: Yes (Other)
  Sender: FDA-Public Use
  Company Number: FR-TEVA-435753ISR

PATIENT
  Age: 60 Year
  Sex: Female

DRUGS (7)
  1. OXALIPLATINE TEVA 5MG/ML [Suspect]
     Indication: ADENOCARCINOMA GASTRIC
     Dosage: 140 MILLIGRAM DAILY; 3 COURSES
     Route: 041
     Dates: start: 20130710, end: 20130807
  2. FLUOROURACILE WINTHROP [Suspect]
     Indication: ADENOCARCINOMA GASTRIC
     Dosage: 3 COURSES
     Route: 041
     Dates: start: 20130710, end: 20130807
  3. ZOPHREN 2MG/ML [Suspect]
     Indication: PROPHYLAXIS OF NAUSEA AND VOMITING
     Dosage: 3 CYCLES
     Dates: start: 20130710, end: 20130807
  4. EMEND 80MG [Suspect]
     Indication: PROPHYLAXIS OF NAUSEA AND VOMITING
     Dosage: 3 COURSES
     Route: 048
     Dates: start: 20130710, end: 20130807
  5. LEVOTHYROX [Concomitant]
     Dosage: 125 MICROGRAM DAILY;
  6. SOLU MEDROL [Concomitant]
  7. FOLINIC ACID [Concomitant]

REACTIONS (4)
  - Visual field defect [Recovered/Resolved]
  - Visual field defect [Recovered/Resolved]
  - Papilloedema [Unknown]
  - Paraesthesia [Unknown]
